FAERS Safety Report 18472694 (Version 1)
Quarter: 2020Q4

REPORT INFORMATION
  Report Type: Spontaneous
  Country: BR (occurrence: BR)
  Receive Date: 20201106
  Receipt Date: 20201106
  Transmission Date: 20210114
  Serious: Yes (Hospitalization)
  Sender: FDA-Public Use
  Company Number: BR-TORRENT-00005469

PATIENT
  Age: 77 Year
  Sex: Female
  Weight: 73 kg

DRUGS (4)
  1. OMEPRAZOLE. [Concomitant]
     Active Substance: OMEPRAZOLE
     Indication: GASTRITIS
     Dosage: UNKNOWN
     Route: 048
  2. HIXIZINE [Concomitant]
     Active Substance: HYDROXYZINE HYDROCHLORIDE
     Indication: HYPERSENSITIVITY
     Dosage: MANY YEARS AGO
     Route: 048
  3. NIMESULIDE [Concomitant]
     Active Substance: NIMESULIDE
     Indication: BACK PAIN
     Dosage: UNKNOWN
     Route: 048
  4. TORLOS [Suspect]
     Active Substance: LOSARTAN POTASSIUM
     Indication: HYPERTENSION
     Dosage: HALF OF THE TABLET (25 MG DAILY)
     Route: 048
     Dates: start: 2015

REACTIONS (5)
  - Anxiety [Not Recovered/Not Resolved]
  - Hypertension [Unknown]
  - COVID-19 [Not Recovered/Not Resolved]
  - Dyspnoea [Not Recovered/Not Resolved]
  - Treatment noncompliance [Unknown]

NARRATIVE: CASE EVENT DATE: 202006
